FAERS Safety Report 10639534 (Version 1)
Quarter: 2014Q4

REPORT INFORMATION
  Report Type: Not Available
  Country: FR (occurrence: FR)
  Receive Date: 20141209
  Receipt Date: 20141209
  Transmission Date: 20150529
  Serious: Yes (Disabling, Congenital Anomaly)
  Sender: FDA-Public Use
  Company Number: FR-BEH-2014047012

PATIENT
  Age: 0 Day
  Sex: Female
  Weight: 2.56 kg

DRUGS (4)
  1. LEVOTHYROX [Suspect]
     Active Substance: LEVOTHYROXINE
     Indication: HYPOTHYROIDISM
     Dosage: DOSE INCREASED IN MOTHER FROM 50 TO 175 MICROGRAM / DAY
     Route: 064
  2. PROGESTAN [Suspect]
     Active Substance: PROGESTERONE
     Route: 064
     Dates: start: 20140120, end: 20140313
  3. RHOPHYLAC [Suspect]
     Active Substance: HUMAN RHO(D) IMMUNE GLOBULIN
     Route: 064
     Dates: start: 20140113, end: 20140113
  4. RHOPHYLAC [Suspect]
     Active Substance: HUMAN RHO(D) IMMUNE GLOBULIN
     Route: 064
     Dates: start: 20140707, end: 20140707

REACTIONS (4)
  - Unevaluable event [Not Recovered/Not Resolved]
  - Congenital hand malformation [Not Recovered/Not Resolved]
  - Foetal exposure during pregnancy [Recovered/Resolved]
  - Foetal malnutrition [Recovering/Resolving]

NARRATIVE: CASE EVENT DATE: 20140903
